FAERS Safety Report 9295314 (Version 1)
Quarter: 2013Q2

REPORT INFORMATION
  Report Type: Spontaneous
  Country: IT (occurrence: IT)
  Receive Date: 20130517
  Receipt Date: 20130517
  Transmission Date: 20140414
  Serious: Yes (Other)
  Sender: FDA-Public Use
  Company Number: PHHY2013IT049045

PATIENT
  Sex: Female

DRUGS (5)
  1. EXELON PATCH [Suspect]
     Indication: DEMENTIA ALZHEIMER^S TYPE
     Dosage: 4.6 MG, DAILY
     Route: 062
     Dates: start: 20130410, end: 20130412
  2. COTAREG [Concomitant]
     Dosage: 1 DF, (160 MG VALS AND 12.5 MG HYDRO) UNK
     Route: 048
  3. LORAZEPAM RATIOPHARM [Concomitant]
     Dosage: 1 DF (2.5 MG), UNK
     Route: 048
  4. PROVISACOR [Concomitant]
     Dosage: 1 DF (10 MG), UNK
     Route: 048
  5. CARDIOASPIRIN [Concomitant]
     Dosage: 1 DF (100 MG), UNK
     Route: 048

REACTIONS (6)
  - Hypertensive crisis [Recovering/Resolving]
  - Muscle spasms [Recovering/Resolving]
  - Pain in extremity [Recovering/Resolving]
  - Hyperhidrosis [Recovering/Resolving]
  - Vomiting [Recovering/Resolving]
  - Decreased appetite [Recovering/Resolving]
